FAERS Safety Report 8451621-0 (Version None)
Quarter: 2012Q2

REPORT INFORMATION
  Report Type: 
  Country: None (occurrence: None)
  Receive Date: 20120620
  Receipt Date: 20120309
  Transmission Date: 20120825
  Serious: No
  Sender: FDA-Public Use
  Company Number: US-VERTEX PHARMACEUTICALS INC.-AE-2012-003453

PATIENT
  Sex: Male
  Weight: 70.824 kg

DRUGS (7)
  1. RIBAVIRIN [Concomitant]
     Indication: HEPATITIS C
     Route: 048
     Dates: start: 20120208
  2. VITAMIN D [Concomitant]
     Route: 048
  3. INCIVEK [Suspect]
     Indication: HEPATITIS C
     Route: 048
     Dates: start: 20120208
  4. PEGASYS [Concomitant]
     Indication: HEPATITIS C
     Route: 058
     Dates: start: 20120208, end: 20120214
  5. PEGASYS [Concomitant]
     Route: 058
     Dates: start: 20120214
  6. VITAMIN A [Concomitant]
     Route: 048
  7. ZOLOFT [Concomitant]
     Indication: DEPRESSION
     Route: 048

REACTIONS (6)
  - VOMITING [None]
  - DECREASED APPETITE [None]
  - FATIGUE [None]
  - APATHY [None]
  - PLATELET COUNT DECREASED [None]
  - NAUSEA [None]
